FAERS Safety Report 6443088-9 (Version None)
Quarter: 2009Q4

REPORT INFORMATION
  Report Type: 
  Country: None (occurrence: None)
  Receive Date: 20091117
  Receipt Date: 20090820
  Transmission Date: 20100525
  Serious: No
  Sender: FDA-Public Use
  Company Number: US-AMGEN-KDL361026

PATIENT
  Sex: Male

DRUGS (4)
  1. VECTIBIX [Suspect]
     Indication: DRUG USE FOR UNKNOWN INDICATION
     Dates: start: 20090811
  2. DOXYCYCLINE [Suspect]
     Dates: start: 20090813
  3. CARVEDILOL [Concomitant]
  4. DIGOXIN [Concomitant]

REACTIONS (1)
  - ORAL DISCOMFORT [None]
